FAERS Safety Report 8610031 (Version 2)
Quarter: 2012Q4

REPORT INFORMATION
  Report Type: 
  Country: US (occurrence: US)
  Receive Date: 20120612
  Receipt Date: 20121026
  Transmission Date: 20130627
  Serious: Yes (Hospitalization, Other)
  Sender: FDA-Public Use
  Company Number: US-BAYER-2012-056804

PATIENT
  Age: 47 Year
  Sex: Female
  Weight: 94.2 kg

DRUGS (27)
  1. YAZ [Suspect]
     Indication: ACNE
     Dosage: UNK
     Dates: start: 200604, end: 200612
  2. YAZ [Suspect]
     Indication: MENSTRUAL CYCLE MANAGEMENT
  3. ALPRAZOLAM [Concomitant]
     Dosage: 0.25 mg 0.5 mg ;TID PRN
     Dates: start: 20061110
  4. ALBUTEROL [Concomitant]
     Indication: ASTHMA
     Dosage: UNK; 1-2 puffs Prn
     Route: 045
  5. AMBIEN [Concomitant]
     Dosage: 5 mg, PRN
     Dates: start: 20061110
  6. EPINEPHRINE [Concomitant]
     Dosage: UNK;as directed
     Dates: start: 20061110
  7. AMITRIPTYLINE [Concomitant]
     Dosage: 10 mg, ? - 1 at bedtime
     Dates: start: 20060419, end: 20061110
  8. ORTHO CYCLEN [Concomitant]
     Dosage: 35/0.25; UNK
     Dates: start: 20060419, end: 20061110
  9. TORADOL [Concomitant]
  10. DARVOCET [Concomitant]
     Indication: DISCOMFORT
     Dosage: UNK;If needed
  11. DARVOCET [Concomitant]
     Indication: DISCOMFORT
     Dosage: 1 q4h (interpreted as every 4 hours)
     Route: 048
     Dates: start: 20061106
  12. CYCLOBENZAPRINE [Concomitant]
     Dosage: 10 mg, ? - 1 TID PRN
  13. MECLOFENAMATE SODIUM [Concomitant]
     Dosage: 100 mg, TID
     Route: 048
     Dates: start: 20060622, end: 20061110
  14. BACTROBAN [Concomitant]
     Dosage: UNK UNK, TID
     Route: 061
     Dates: start: 20060930
  15. ADVAIR DISKUS [Concomitant]
     Indication: ASTHMA
     Dosage: one puff, BID
     Route: 045
  16. NORCO [Concomitant]
     Dosage: UNK; two every four hours
     Route: 048
     Dates: start: 20061103
  17. XANAX [Concomitant]
     Dosage: 0.25 mg, PRN
     Route: 048
  18. ATIVAN [Concomitant]
  19. PREDNISONE [Concomitant]
  20. NARCOTICS [Concomitant]
  21. FLEXERIL [Concomitant]
     Dosage: 10 mg, TID
     Route: 048
     Dates: start: 20061103
  22. ACETAMINOPHEN [Concomitant]
     Dosage: UNK
     Dates: start: 20061110
  23. ANSAID [Concomitant]
     Dosage: 100 mg, TID
     Route: 048
     Dates: start: 20061106
  24. CIPROFLOXACIN [Concomitant]
     Dosage: UNK
     Route: 050
     Dates: start: 20060928
  25. DICLOXACILLIN SODIUM [Concomitant]
     Dosage: 250 mg, QID
     Route: 048
     Dates: start: 20060930
  26. METHYLPREDNISOLONE [Concomitant]
     Dosage: 4 mg, 1 tab by mouth
     Route: 048
     Dates: start: 20061218, end: 20061226
  27. VICODIN [Concomitant]
     Dosage: UNK
     Dates: start: 20061110

REACTIONS (4)
  - Deep vein thrombosis [None]
  - Brain injury [None]
  - Injury [None]
  - Pain [None]
